FAERS Safety Report 4489527-4 (Version None)
Quarter: 2004Q4

REPORT INFORMATION
  Report Type: 
  Country: None (occurrence: None)
  Receive Date: 20041028
  Receipt Date: 20041013
  Transmission Date: 20050328
  Serious: Yes (Other)
  Sender: FDA-Public Use
  Company Number: 206206

PATIENT
  Age: 47 Year
  Sex: Female

DRUGS (1)
  1. AVONEX [Suspect]
     Indication: MULTIPLE SCLEROSIS
     Dosage: 30 MCG QW IM
     Route: 030
     Dates: start: 20040805, end: 20040930

REACTIONS (7)
  - BLINDNESS TRANSIENT [None]
  - DEPRESSED MOOD [None]
  - DIPLOPIA [None]
  - DISORIENTATION [None]
  - HYPOACUSIS [None]
  - LOSS OF CONSCIOUSNESS [None]
  - TREMOR [None]
